FAERS Safety Report 10947500 (Version 2)
Quarter: 2015Q1

REPORT INFORMATION
  Report Type: Spontaneous
  Country: JP (occurrence: JP)
  Receive Date: 20150323
  Receipt Date: 20150325
  Transmission Date: 20150721
  Serious: Yes (Hospitalization, Disabling, Other)
  Sender: FDA-Public Use
  Company Number: JP-B.I. PHARMACEUTICALS,INC./RIDGEFIELD-2015-BI-08173NB

PATIENT
  Age: 75 Year
  Sex: Female

DRUGS (7)
  1. DOPACOL [Concomitant]
     Active Substance: CARBIDOPA\LEVODOPA
     Indication: PARKINSON^S DISEASE
     Dosage: 600 MG
     Route: 048
     Dates: start: 20140513
  2. LIVALO [Concomitant]
     Active Substance: PITAVASTATIN CALCIUM
     Indication: HYPERCHOLESTEROLAEMIA
     Dosage: 1 MG
     Route: 048
     Dates: start: 20140513
  3. SENNOSIDE [Concomitant]
     Active Substance: SENNOSIDES
     Indication: PARKINSON^S DISEASE
     Route: 048
     Dates: start: 20140513
  4. LAXOBERON [Concomitant]
     Active Substance: SODIUM PICOSULFATE
     Indication: PRODUCT USED FOR UNKNOWN INDICATION
     Route: 048
     Dates: start: 20150130
  5. COMTAN [Concomitant]
     Active Substance: ENTACAPONE
     Indication: PARKINSON^S DISEASE
     Dosage: 300 MG
     Route: 048
     Dates: start: 20140513
  6. MAGMITT [Concomitant]
     Active Substance: MAGNESIUM OXIDE
     Indication: PARKINSON^S DISEASE
     Route: 048
     Dates: start: 20140513
  7. BI-SIFROL [Suspect]
     Active Substance: PRAMIPEXOLE
     Indication: PARKINSON^S DISEASE
     Dosage: 1.5 MG
     Route: 048
     Dates: start: 20140513

REACTIONS (7)
  - Choking [Not Recovered/Not Resolved]
  - Wrong technique in drug usage process [Unknown]
  - Parkinson^s disease [Not Recovered/Not Resolved]
  - Nasopharyngitis [Recovered/Resolved]
  - Wrong technique in drug usage process [Unknown]
  - Dysphagia [Unknown]
  - Speech disorder [Not Recovered/Not Resolved]

NARRATIVE: CASE EVENT DATE: 20141031
